FAERS Safety Report 5794149-9 (Version None)
Quarter: 2008Q2

REPORT INFORMATION
  Report Type: 
  Country: None (occurrence: None)
  Receive Date: 20080627
  Receipt Date: 20080519
  Transmission Date: 20081010
  Serious: Yes (Other)
  Sender: FDA-Public Use
  Company Number: -MERCK-0806HUN00003

PATIENT
  Age: 19 Year
  Sex: Female

DRUGS (10)
  1. CRIXIVAN [Suspect]
     Indication: ANTIRETROVIRAL THERAPY
     Route: 048
     Dates: start: 19980801, end: 20011201
  2. STOCRIN [Suspect]
     Indication: ANTIRETROVIRAL THERAPY
     Route: 048
     Dates: start: 20020201, end: 20031101
  3. ZIDOVUDINE [Suspect]
     Indication: ANTIRETROVIRAL THERAPY
     Route: 065
     Dates: start: 19970101, end: 20020201
  4. ZALCITABINE [Suspect]
     Indication: ANTIRETROVIRAL THERAPY
     Route: 065
     Dates: start: 19970101, end: 19980801
  5. LAMIVUDINE [Suspect]
     Indication: ANTIRETROVIRAL THERAPY
     Route: 065
     Dates: start: 19980801, end: 20060301
  6. ABACAVIR SULFATE [Suspect]
     Indication: ANTIRETROVIRAL THERAPY
     Route: 065
     Dates: start: 20031101, end: 20040901
  7. STAVUDINE [Suspect]
     Indication: ANTIRETROVIRAL THERAPY
     Route: 065
     Dates: start: 20040901, end: 20060301
  8. SAQUINAVIR [Suspect]
     Indication: ANTIRETROVIRAL THERAPY
     Route: 065
     Dates: start: 20040901, end: 20060301
  9. KALETRA [Suspect]
     Indication: ANTIRETROVIRAL THERAPY
     Route: 065
     Dates: start: 20060301
  10. COMBIVIR [Suspect]
     Indication: ANTIRETROVIRAL THERAPY
     Route: 065
     Dates: start: 20070301

REACTIONS (13)
  - BUNDLE BRANCH BLOCK RIGHT [None]
  - CELL DEATH [None]
  - CORONARY ARTERY OCCLUSION [None]
  - HAEMATURIA [None]
  - HIGH DENSITY LIPOPROTEIN DECREASED [None]
  - HYPERBILIRUBINAEMIA [None]
  - HYPERCHOLESTEROLAEMIA [None]
  - HYPERTENSION [None]
  - HYPERTRIGLYCERIDAEMIA [None]
  - LIPOATROPHY [None]
  - LIPOHYPERTROPHY [None]
  - LOW DENSITY LIPOPROTEIN INCREASED [None]
  - SINUS TACHYCARDIA [None]
